FAERS Safety Report 4342475-2 (Version None)
Quarter: 2004Q2

REPORT INFORMATION
  Report Type: 
  Country: None (occurrence: None)
  Receive Date: 20040416
  Receipt Date: 20040404
  Transmission Date: 20050107
  Serious: Yes (Life-Threatening, Hospitalization)
  Sender: FDA-Public Use
  Company Number: 04P-062-0256181-00

PATIENT
  Age: 63 Year
  Sex: Female
  Weight: 100 kg

DRUGS (24)
  1. HUMIRA [Suspect]
     Indication: RHEUMATOID ARTHRITIS
     Dosage: 40 MG, 1 IN 2 WK, SUBCUTANEOUS
     Route: 058
     Dates: start: 20040114, end: 20040323
  2. METHOTREXATE [Suspect]
     Dosage: 15 MG, 1 IN 1 WK, PER ORAL
     Route: 048
  3. PHENPROCOUMON [Concomitant]
  4. PREDNISONE [Concomitant]
  5. PANTOPRAZOLE SODIUM [Concomitant]
  6. ROFECOXIB [Concomitant]
  7. CIBADREX [Concomitant]
  8. DIHYDRALAZINE SULFATE [Concomitant]
  9. MOXONIDINE [Concomitant]
  10. ALLOPURINOL TAB [Concomitant]
  11. GLYBURIDE [Concomitant]
  12. LEKOVIT CA [Concomitant]
  13. FERROGLYCINE SULFATE COMPLEX [Concomitant]
  14. METHOTREXATE SODIUM [Concomitant]
  15. FOLIC ACID [Concomitant]
  16. VALORON N [Concomitant]
  17. PRAVASTATIN SODIUM [Concomitant]
  18. TEBESIUM [Concomitant]
  19. INSULIN NORDISK MIXTARD (PORK) [Concomitant]
  20. INSULIN HUMAN [Concomitant]
  21. ISOPHANE INSULIN [Concomitant]
  22. LEVOTHYROXINE SODIUM [Concomitant]
  23. DIGOXIN [Concomitant]
  24. CARVEDILOL [Concomitant]

REACTIONS (22)
  - ACTIVATED PARTIAL THROMBOPLASTIN TIME PROLONGED [None]
  - ALPHA 1 GLOBULIN INCREASED [None]
  - ALPHA 2 GLOBULIN INCREASED [None]
  - ALVEOLITIS [None]
  - ASPARTATE AMINOTRANSFERASE INCREASED [None]
  - BETA GLOBULIN ABNORMAL [None]
  - BLOOD ALBUMIN DECREASED [None]
  - BLOOD CHOLINESTERASE DECREASED [None]
  - BLOOD GLUCOSE INCREASED [None]
  - BLOOD LACTATE DEHYDROGENASE INCREASED [None]
  - BLOOD UREA INCREASED [None]
  - C-REACTIVE PROTEIN INCREASED [None]
  - DIFFERENTIAL WHITE BLOOD CELL COUNT ABNORMAL [None]
  - HAEMATOCRIT DECREASED [None]
  - HAEMOGLOBIN DECREASED [None]
  - INTERSTITIAL LUNG DISEASE [None]
  - PLATELET COUNT INCREASED [None]
  - RED BLOOD CELL COUNT ABNORMAL [None]
  - RESPIRATORY FAILURE [None]
  - SERUM FERRITIN INCREASED [None]
  - THYROID FUNCTION TEST ABNORMAL [None]
  - TROPONIN INCREASED [None]
